FAERS Safety Report 9983702 (Version 1)
Quarter: 2014Q1

REPORT INFORMATION
  Report Type: Spontaneous
  Country: US (occurrence: US)
  Receive Date: 20140307
  Receipt Date: 20140307
  Transmission Date: 20141002
  Serious: Yes (Death)
  Sender: FDA-Public Use
  Company Number: US-SA-2014SA028396

PATIENT
  Age: 86 Year
  Sex: Female

DRUGS (1)
  1. LOVENOX [Suspect]
     Route: 065
     Dates: start: 201302

REACTIONS (1)
  - Death [Fatal]
